FAERS Safety Report 7303999-9 (Version None)
Quarter: 2011Q1

REPORT INFORMATION
  Report Type: 
  Country: None (occurrence: None)
  Receive Date: 20110221
  Receipt Date: 20110210
  Transmission Date: 20110831
  Serious: Yes (Hospitalization)
  Sender: FDA-Public Use
  Company Number: JP-MERCK-1102USA01046

PATIENT
  Age: 78 Year
  Sex: Female

DRUGS (7)
  1. SENNOSIDES [Concomitant]
     Route: 048
  2. AMARYL [Concomitant]
     Route: 048
  3. JANUVIA [Suspect]
     Indication: DIABETES MELLITUS
     Route: 048
     Dates: start: 20110114, end: 20110121
  4. THYRADIN-S [Concomitant]
     Route: 048
  5. GASMOTIN [Concomitant]
     Route: 048
  6. METFORMIN HCL [Concomitant]
     Route: 048
  7. TAKEPRON [Concomitant]
     Route: 048

REACTIONS (1)
  - PNEUMONIA [None]
